FAERS Safety Report 22180048 (Version 2)
Quarter: 2023Q2

REPORT INFORMATION
  Report Type: Spontaneous
  Country: MX (occurrence: MX)
  Receive Date: 20230406
  Receipt Date: 20230425
  Transmission Date: 20230722
  Serious: Yes (Hospitalization, Other)
  Sender: FDA-Public Use
  Company Number: MX-BAYER-2023A043723

PATIENT
  Sex: Female

DRUGS (6)
  1. EYLEA [Suspect]
     Active Substance: AFLIBERCEPT
     Indication: Macular degeneration
     Dosage: RIGHT EYE (FIRST APPLICATION); SOLUTION FOR INJECTION; 40MG/ML
     Dates: start: 20221223, end: 20221223
  2. EYLEA [Suspect]
     Active Substance: AFLIBERCEPT
     Dosage: RIGHT EYE (SECOND APPLICATION); SOLUTION FOR INJECTION
     Dates: start: 20230203, end: 20230203
  3. EYLEA [Suspect]
     Active Substance: AFLIBERCEPT
     Dosage: THIRD APPLICATION; SOLUTION FOR INJECTION
     Dates: start: 20230301, end: 20230301
  4. ACENOCOUMAROL [Concomitant]
     Active Substance: ACENOCOUMAROL
     Indication: Product used for unknown indication
  5. VITAMIN B [Concomitant]
     Active Substance: VITAMIN B
     Indication: Product used for unknown indication
     Dosage: UNK
     Dates: start: 20230302
  6. PROPRANOLOL HYDROCHLORIDE [Concomitant]
     Active Substance: PROPRANOLOL HYDROCHLORIDE
     Indication: Product used for unknown indication
     Dosage: UNK
     Dates: start: 20230302

REACTIONS (4)
  - Hemihypoaesthesia [Recovering/Resolving]
  - Ischaemic stroke [Unknown]
  - Hemiparesis [Unknown]
  - Pain in extremity [Unknown]

NARRATIVE: CASE EVENT DATE: 20230301
